FAERS Safety Report 9307201 (Version 1)
Quarter: 2013Q2

REPORT INFORMATION
  Report Type: Spontaneous
  Country: US (occurrence: US)
  Receive Date: 20130524
  Receipt Date: 20130524
  Transmission Date: 20140414
  Serious: Yes (Other)
  Sender: FDA-Public Use
  Company Number: US-AMGEN-USASP2013035199

PATIENT
  Age: 24 Year
  Sex: Female

DRUGS (1)
  1. NPLATE [Suspect]
     Indication: IDIOPATHIC THROMBOCYTOPENIC PURPURA
     Dosage: 100 MUG, UNK

REACTIONS (3)
  - Platelet count decreased [Unknown]
  - Mouth haemorrhage [Unknown]
  - Petechiae [Unknown]
